FAERS Safety Report 6147814-8 (Version None)
Quarter: 2009Q2

REPORT INFORMATION
  Report Type: 
  Country: None (occurrence: None)
  Receive Date: 20090402
  Receipt Date: 20090326
  Transmission Date: 20091009
  Serious: Yes (Hospitalization, Other)
  Sender: FDA-Public Use
  Company Number: 2009AL001837

PATIENT
  Age: 41 Year
  Sex: Male

DRUGS (6)
  1. CHLORPROMAZINE HYDROCHLORIDE [Suspect]
     Indication: AGITATION
     Dosage: 25 MG; PO
     Route: 048
     Dates: start: 20080701, end: 20080701
  2. RISPERIDONE [Concomitant]
  3. ZOLPIDEM TARTRATE [Concomitant]
  4. DOTHIEPIN HYDROCHLORIDE [Concomitant]
  5. DIAZEPAM [Concomitant]
  6. DISULFIRAM [Concomitant]

REACTIONS (4)
  - MYALGIA [None]
  - NAUSEA [None]
  - NEUROLEPTIC MALIGNANT SYNDROME [None]
  - VOMITING [None]
